FAERS Safety Report 7144939-5 (Version None)
Quarter: 2010Q4

REPORT INFORMATION
  Report Type: 
  Country: None (occurrence: None)
  Receive Date: 20101208
  Receipt Date: 20101124
  Transmission Date: 20110411
  Serious: Yes (Death, Life-Threatening, Hospitalization, Other)
  Sender: FDA-Public Use
  Company Number: MX-JNJFOC-20081203442

PATIENT
  Sex: Male
  Weight: 39 kg

DRUGS (6)
  1. TMC114 [Suspect]
  2. TMC114 [Suspect]
     Indication: HIV INFECTION
  3. RITONAVIR [Suspect]
     Indication: HIV INFECTION
     Route: 048
  4. TENOFOVIR DISOPROXIL FUMARATE [Suspect]
     Indication: HIV INFECTION
  5. FTC [Suspect]
     Indication: HIV INFECTION
  6. TMC125 [Concomitant]
     Indication: HIV INFECTION
     Route: 048

REACTIONS (3)
  - CACHEXIA [None]
  - DEHYDRATION [None]
  - DIABETES MELLITUS INADEQUATE CONTROL [None]
